FAERS Safety Report 4424407-1 (Version None)
Quarter: 2004Q3

REPORT INFORMATION
  Report Type: 
  Country: None (occurrence: None)
  Receive Date: 20040812
  Receipt Date: 20040804
  Transmission Date: 20050211
  Serious: Yes (Death)
  Sender: FDA-Public Use
  Company Number: CA-JNJFOC-20040706707

PATIENT
  Sex: Female
  Weight: 91.63 kg

DRUGS (6)
  1. RISPERDAL [Suspect]
     Indication: SCHIZOPHRENIA
     Route: 049
     Dates: start: 19991201, end: 20031201
  2. ZYPREXA [Suspect]
     Indication: SCHIZOPHRENIA
     Route: 049
     Dates: start: 20030101, end: 20031201
  3. SERTRALINE HCL [Concomitant]
     Route: 049
     Dates: start: 20030701
  4. TEMAZEPAM [Concomitant]
     Dosage: DOSE TAKEN AT NIGHT
     Dates: start: 19990701
  5. CLONAZEPAM [Concomitant]
     Dosage: DOSE TAKEN AT NIGHT
     Dates: start: 19990701
  6. TRAZODONE HCL [Concomitant]
     Dosage: DOSE TAKEN AT NIGHT
     Dates: start: 19991201

REACTIONS (5)
  - BLOOD CHOLESTEROL INCREASED [None]
  - BLOOD GLUCOSE INCREASED [None]
  - BLOOD TRIGLYCERIDES INCREASED [None]
  - POLYDIPSIA [None]
  - POLYURIA [None]
